FAERS Safety Report 4485599-1 (Version None)
Quarter: 2004Q4

REPORT INFORMATION
  Report Type: 
  Country: None (occurrence: None)
  Receive Date: 20041026
  Receipt Date: 20041015
  Transmission Date: 20050328
  Serious: Yes (Death)
  Sender: FDA-Public Use
  Company Number: ES-JNJFOC-20041005227

PATIENT
  Age: 50 Year
  Sex: Male

DRUGS (8)
  1. RISPERDAL CONSTA [Suspect]
     Route: 030
  2. VANDRAL RETARD [Interacting]
     Indication: DRUG USE FOR UNKNOWN INDICATION
  3. DEPAMIDE [Interacting]
     Indication: DRUG USE FOR UNKNOWN INDICATION
     Route: 049
  4. AKINETON RETARD [Interacting]
     Indication: DRUG USE FOR UNKNOWN INDICATION
     Route: 049
  5. DEPRAX [Interacting]
     Indication: DRUG USE FOR UNKNOWN INDICATION
     Route: 049
  6. RHODOLGYL [Concomitant]
     Route: 049
  7. ZYPREXA [Concomitant]
     Route: 049
  8. TRANXENE [Concomitant]

REACTIONS (2)
  - COMPLETED SUICIDE [None]
  - DRUG INTERACTION [None]
